FAERS Safety Report 10715896 (Version 1)
Quarter: 2015Q1

REPORT INFORMATION
  Report Type: Report from Study
  Country: US (occurrence: None)
  Receive Date: 20150109
  Receipt Date: 20150109
  Transmission Date: 20150721
  Serious: Yes (Hospitalization)
  Sender: FDA-Public Use
  Company Number: 2014PROUSA03690

PATIENT
  Age: 82 Year
  Sex: Male
  Weight: 102 kg

DRUGS (13)
  1. PROVENGE [Suspect]
     Active Substance: SIPULEUCEL-T
     Indication: PROSTATE CANCER METASTATIC
     Route: 042
     Dates: start: 20130418, end: 20130418
  2. AMLODIPINE (AMLODIPINE BESILATE) [Concomitant]
  3. ATORVASTATIN (ATORVASTATIN CALCIUIM) [Concomitant]
  4. ENALAPRIL (ENALAPRIL MALEATE) [Concomitant]
  5. LOPRESSOR [Concomitant]
     Active Substance: METOPROLOL TARTRATE
  6. FLOMAX [Concomitant]
     Active Substance: TAMSULOSIN HYDROCHLORIDE
  7. JANUVIA (SITAGLIPTIN PHOSAPHATE) [Concomitant]
  8. MVI (VITAMINS NOS) [Concomitant]
  9. GLIPIZIDE XL (GLIPIZIDE) [Concomitant]
  10. ASPIRIN. [Concomitant]
     Active Substance: ASPIRIN
  11. VESICARE [Concomitant]
     Active Substance: SOLIFENACIN SUCCINATE
  12. CALCIUM (CALCIUM CARBONATE) [Concomitant]
  13. LUPRON (LEUPRORELIN ACETATE) [Concomitant]

REACTIONS (1)
  - Dyspnoea [None]

NARRATIVE: CASE EVENT DATE: 20130624
